FAERS Safety Report 9914673 (Version 2)
Quarter: 2014Q1

REPORT INFORMATION
  Report Type: Spontaneous
  Country: US (occurrence: US)
  Receive Date: 20140220
  Receipt Date: 20140220
  Transmission Date: 20141002
  Serious: Yes (Hospitalization)
  Sender: FDA-Public Use
  Company Number: PHEH2013US025313

PATIENT
  Age: 67 Year
  Sex: Male
  Weight: 66.2 kg

DRUGS (8)
  1. CLOZARIL [Suspect]
     Indication: SCHIZOPHRENIA
     Dosage: UNK
  2. CLOZARIL [Suspect]
     Dosage: 25 MG, AT NIGHT, DAILY
     Route: 048
     Dates: start: 20131116, end: 20131205
  3. LATUDA [Concomitant]
     Indication: SCHIZOPHRENIA
     Dosage: 20 MG, DAILY
     Route: 048
     Dates: start: 20131110
  4. BENZTROPINE [Concomitant]
     Dosage: 10 MG, AT NIGHT DAILY
     Route: 048
     Dates: start: 20131110
  5. PROZAC [Concomitant]
     Indication: DEPRESSION
     Dosage: 20 MG, DAILY
     Route: 048
     Dates: start: 20131105
  6. ZOFRAN [Concomitant]
     Indication: NAUSEA
     Dosage: 4 MG, DAILY
     Route: 048
     Dates: start: 20130807
  7. AMBIEN [Concomitant]
     Indication: SLEEP DISORDER
     Dosage: 10 MG, AT NIGHT DAILY
     Route: 048
     Dates: start: 20130807
  8. VALIUM [Concomitant]
     Dosage: 10 MG, TID
     Route: 048
     Dates: start: 20130807

REACTIONS (7)
  - Fall [Unknown]
  - Hypophagia [Unknown]
  - Neuroleptic malignant syndrome [Unknown]
  - Disorientation [Unknown]
  - Rhabdomyolysis [Recovered/Resolved]
  - Body temperature increased [Recovering/Resolving]
  - Blood creatine phosphokinase increased [Unknown]
